FAERS Safety Report 7526151-0 (Version None)
Quarter: 2011Q2

REPORT INFORMATION
  Report Type: 
  Country: None (occurrence: None)
  Receive Date: 20110527
  Receipt Date: 20110518
  Transmission Date: 20111010
  Serious: Yes (Other)
  Sender: FDA-Public Use
  Company Number: HA11-112-AE

PATIENT
  Age: 61 Year
  Sex: Female
  Weight: 99 kg

DRUGS (8)
  1. ESTRADIOL [Concomitant]
  2. ZICAM [Concomitant]
  3. NAPROXEN [Suspect]
     Indication: BACK PAIN
     Dosage: IV
     Route: 042
     Dates: start: 20090818, end: 20091014
  4. NAPROXEN [Suspect]
     Indication: BACK PAIN
     Dosage: 500 MG, 2X/DAY, ORAL
     Route: 048
     Dates: start: 20090818, end: 20091209
  5. RABEPRAZOLE SODIUM [Concomitant]
  6. ASPIRIN [Concomitant]
  7. TRIAMTERENE WITH HYDROCHLOROTHIAZIDE [Concomitant]
  8. LORATADINE [Concomitant]

REACTIONS (1)
  - MALIGNANT MELANOMA [None]
